FAERS Safety Report 9503308 (Version 1)
Quarter: 2013Q3

REPORT INFORMATION
  Report Type: Report from Study
  Country: CO (occurrence: CO)
  Receive Date: 20130906
  Receipt Date: 20130906
  Transmission Date: 20140515
  Serious: Yes (Death, Hospitalization)
  Sender: FDA-Public Use
  Company Number: CO-ABBOTT-13P-036-1143304-00

PATIENT
  Age: 49 Year
  Sex: Female

DRUGS (1)
  1. ZEMPLAR [Suspect]
     Indication: HYPERPARATHYROIDISM SECONDARY
     Dates: start: 20120806, end: 20130309

REACTIONS (2)
  - Erythema [Fatal]
  - Nosocomial infection [Fatal]
